FAERS Safety Report 4553425-8 (Version None)
Quarter: 2005Q1

REPORT INFORMATION
  Report Type: 
  Country: None (occurrence: None)
  Receive Date: 20050112
  Receipt Date: 20040723
  Transmission Date: 20050727
  Serious: Yes (Life-Threatening, Hospitalization)
  Sender: FDA-Public Use
  Company Number: 2004044528

PATIENT
  Age: 21 Year
  Sex: Male
  Weight: 68 kg

DRUGS (2)
  1. ZIPRASIDONE (CAPS) (ZIPRASIDONE) [Suspect]
     Indication: SCHIZOPHRENIA
     Dosage: 100 MG (1 IN 1 D), ORAL
     Route: 048
     Dates: start: 20040517, end: 20040701
  2. CLONAZEPAM [Concomitant]

REACTIONS (15)
  - AGITATION [None]
  - AKATHISIA [None]
  - ANXIETY [None]
  - DELIRIUM [None]
  - HOMICIDAL IDEATION [None]
  - HYPERHIDROSIS [None]
  - IMPULSE-CONTROL DISORDER [None]
  - INCONTINENCE [None]
  - INSOMNIA [None]
  - NERVOUS SYSTEM DISORDER [None]
  - PSYCHOMOTOR AGITATION [None]
  - PSYCHOTIC DISORDER [None]
  - RESTLESSNESS [None]
  - SENSE OF OPPRESSION [None]
  - SUICIDAL IDEATION [None]
